FAERS Safety Report 5123925-0 (Version None)
Quarter: 2006Q4

REPORT INFORMATION
  Report Type: 
  Country: None (occurrence: None)
  Receive Date: 20061010
  Receipt Date: 20060929
  Transmission Date: 20070319
  Serious: Yes (Other)
  Sender: FDA-Public Use
  Company Number: NL-GLAXOSMITHKLINE-B0440943A

PATIENT
  Age: 1 Year
  Sex: Male

DRUGS (2)
  1. FLUTICASONE PROPIONATE [Suspect]
     Indication: ASTHMA
     Dosage: 250UG TWICE PER DAY
     Route: 055
  2. SALBUTAMOL [Suspect]
     Indication: ASTHMA
     Dosage: 100UG AS REQUIRED
     Route: 055

REACTIONS (1)
  - AGGRESSION [None]
